FAERS Safety Report 7477012-7 (Version None)
Quarter: 2011Q2

REPORT INFORMATION
  Report Type: 
  Country: None (occurrence: None)
  Receive Date: 20110512
  Receipt Date: 20110503
  Transmission Date: 20111010
  Serious: Yes (Other)
  Sender: FDA-Public Use
  Company Number: ES-ABBOTT-11P-144-0723561-00

PATIENT
  Age: 59 Year
  Sex: Male

DRUGS (7)
  1. VENLAFAXINE [Concomitant]
     Indication: ANXIETY
     Route: 048
     Dates: start: 20100610
  2. VALPROATE SODIUM [Suspect]
     Indication: TREMOR
     Route: 048
     Dates: start: 20100604, end: 20100901
  3. NOCTAMID [Concomitant]
     Indication: INSOMNIA
     Route: 048
     Dates: start: 20100604
  4. TAMSULOSIN HCL [Concomitant]
     Indication: BENIGN PROSTATIC HYPERPLASIA
     Route: 048
     Dates: start: 20100606
  5. RISPERIDONE [Concomitant]
     Indication: SCHIZOPHRENIA
     Route: 048
     Dates: start: 20100604
  6. ALPRAZOLAM [Concomitant]
     Indication: ANXIETY
     Route: 048
     Dates: start: 20100610, end: 20100901
  7. TEBETANE COMPUESTO [Concomitant]
     Indication: BENIGN PROSTATIC HYPERPLASIA
     Route: 048
     Dates: start: 20100610, end: 20101216

REACTIONS (5)
  - EXTRAPYRAMIDAL DISORDER [None]
  - ABNORMAL WEIGHT GAIN [None]
  - DRUG INTERACTION [None]
  - TREMOR [None]
  - CONVULSION [None]
